FAERS Safety Report 26005447 (Version 1)
Quarter: 2025Q4

REPORT INFORMATION
  Report Type: Report from Study
  Country: US (occurrence: US)
  Receive Date: 20251106
  Receipt Date: 20251106
  Transmission Date: 20260118
  Serious: Yes (Other)
  Sender: ALEXION PHARMACEUTICALS
  Company Number: US-ASTRAZENECA-202510NAM031859US

PATIENT
  Age: 12 Year
  Sex: Female

DRUGS (1)
  1. STRENSIQ [Suspect]
     Active Substance: ASFOTASE ALFA
     Indication: Phosphorus metabolism disorder
     Dosage: 80 MILLIGRAM, Q3W,2 MG/KG TIW
     Route: 065

REACTIONS (3)
  - Coloboma [Unknown]
  - Cataract [Unknown]
  - Tympanic membrane perforation [Unknown]
